FAERS Safety Report 7194252-5 (Version None)
Quarter: 2010Q4

REPORT INFORMATION
  Report Type: 
  Country: None (occurrence: None)
  Receive Date: 20101223
  Receipt Date: 20101116
  Transmission Date: 20110411
  Serious: No
  Sender: FDA-Public Use
  Company Number: US-AMGEN-KDL432200

PATIENT

DRUGS (2)
  1. ENBREL [Suspect]
     Indication: JUVENILE ARTHRITIS
     Dosage: 50 MG, QWK
     Route: 058
     Dates: start: 20100817
  2. ENBREL [Suspect]
     Dosage: 40 MG, QWK
     Route: 058
     Dates: start: 20100801

REACTIONS (2)
  - INJECTION SITE PAIN [None]
  - JUVENILE ARTHRITIS [None]
